FAERS Safety Report 7671667-X (Version None)
Quarter: 2011Q3

REPORT INFORMATION
  Report Type: 
  Country: None (occurrence: None)
  Receive Date: 20110804
  Receipt Date: 20110726
  Transmission Date: 20111222
  Serious: Yes (Hospitalization, Other)
  Sender: FDA-Public Use
  Company Number: CIP10001985

PATIENT
  Age: 70 Year
  Sex: Female
  Weight: 44.5 kg

DRUGS (38)
  1. CELEXA [Concomitant]
  2. DETROL LA [Concomitant]
  3. MOVE FREE (CHONDROITIN SULFATE, GLUCOSAMINE) [Concomitant]
  4. FOSAMAX [Suspect]
     Indication: OSTEOPOROSIS
     Dosage: 70 MG ONCE WEEKLY, ORAL
     Route: 048
     Dates: start: 19980101, end: 20040219
  5. FOSAMAX [Suspect]
     Indication: PROPHYLAXIS
     Dosage: 70 MG ONCE WEEKLY, ORAL
     Route: 048
     Dates: start: 19980101, end: 20040219
  6. SINGULAIR [Concomitant]
  7. HALCION [Concomitant]
  8. METHYLPREDISOLONE (METHYLPREDNISOLONE) [Concomitant]
  9. RESTORIL (CHLORMEZANONE) [Concomitant]
  10. VICODIN [Concomitant]
  11. DITROPAN [Concomitant]
  12. BONIVA [Suspect]
     Dosage: 150 MG ONCE MONTHLY, ORAL
     Route: 048
     Dates: start: 20081023
  13. VITAMIN D [Concomitant]
  14. LEXAPRO [Concomitant]
  15. ZYMAR [Concomitant]
  16. CO Q-10 (UBIDECARENONE) [Concomitant]
  17. OMEGA-3-ACID ETHYL ESTERS (LOVAZA) [Concomitant]
  18. ZESTRIL [Concomitant]
  19. OXYGEN (OXYGEN) [Concomitant]
  20. PREMPRO [Concomitant]
  21. MIACALCIN [Concomitant]
  22. TEMAZEPAM [Concomitant]
  23. CALCIUM (CALCIUM) [Concomitant]
  24. ASCORBIC ACID [Concomitant]
  25. VOLTAREN [Concomitant]
  26. WELLBUTRIN [Concomitant]
  27. MULTIVITAMIN [Concomitant]
  28. ZOLPIDEM [Concomitant]
  29. SPIRIVA [Concomitant]
  30. ACTONEL [Suspect]
     Dosage: 35 MG ONCE WEEKLY, ORAL
     Route: 048
     Dates: start: 20040219, end: 20080328
  31. ACTONEL [Suspect]
     Dosage: 30 MG, DAILY, ORAL
     Route: 048
     Dates: start: 20060406
  32. LIPITOR [Concomitant]
  33. COUMADIN [Concomitant]
  34. XANAX [Concomitant]
  35. SANCTURA [Concomitant]
  36. FEROCON (FERROUS FUMARATE, FOLIC ACID, VITAMIN-B-KOMPLEX STANDARD) [Concomitant]
  37. CELEBREX [Concomitant]
  38. FLONASE [Concomitant]

REACTIONS (19)
  - STRESS FRACTURE [None]
  - BALANCE DISORDER [None]
  - ARTHRALGIA [None]
  - DRUG INTOLERANCE [None]
  - PATELLOFEMORAL PAIN SYNDROME [None]
  - FALL [None]
  - ECCHYMOSIS [None]
  - TRAUMATIC FRACTURE [None]
  - POST PROCEDURAL COMPLICATION [None]
  - ANAEMIA [None]
  - PAIN IN EXTREMITY [None]
  - FEMUR FRACTURE [None]
  - BONE DISORDER [None]
  - GAIT DISTURBANCE [None]
  - LOW TURNOVER OSTEOPATHY [None]
  - FEMORAL NECK FRACTURE [None]
  - ATELECTASIS [None]
  - RIB FRACTURE [None]
  - ACTIVITIES OF DAILY LIVING IMPAIRED [None]
